FAERS Safety Report 16308592 (Version 1)
Quarter: 2019Q2

REPORT INFORMATION
  Report Type: Spontaneous
  Country: JP (occurrence: JP)
  Receive Date: 20190514
  Receipt Date: 20190514
  Transmission Date: 20190711
  Serious: Yes (Death)
  Sender: FDA-Public Use
  Company Number: US-SLATE RUN PHARMACEUTICALS-SLTR-AE-19-20

PATIENT
  Age: 29 Year
  Sex: Male

DRUGS (2)
  1. AMPHOTERICIN B. [Concomitant]
     Active Substance: AMPHOTERICIN B
  2. 70436-029-80 VORICONAZOLE FOR INJECTION DRY VIAL 200 MG [Suspect]
     Active Substance: VORICONAZOLE
     Indication: BRONCHOPULMONARY ASPERGILLOSIS
     Route: 042

REACTIONS (3)
  - Pleural effusion [Fatal]
  - Coma [Fatal]
  - Subdural haematoma [Fatal]
